FAERS Safety Report 21161366 (Version 1)
Quarter: 2022Q3

REPORT INFORMATION
  Report Type: Spontaneous
  Country: GB (occurrence: GB)
  Receive Date: 20220802
  Receipt Date: 20220802
  Transmission Date: 20221027
  Serious: Yes (Other)
  Sender: FDA-Public Use
  Company Number: None

PATIENT
  Age: 3 Year
  Sex: Female
  Weight: 16 kg

DRUGS (6)
  1. CARBOPLATIN [Suspect]
     Active Substance: CARBOPLATIN
     Dosage: 50MG/5ML
     Dates: start: 20220708
  2. COSMOCOL [Concomitant]
     Dosage: TAKE AS DIRECTED BY YOUR DOCTOR
     Dates: start: 20220715
  3. HEPARIN SODIUM [Concomitant]
     Active Substance: HEPARIN SODIUM
     Dosage: USE AS DIRECTED
     Dates: start: 20220616, end: 20220626
  4. POLYETHYLENE GLYCOL 3350\POTASSIUM CHLORIDE\SODIUM BICARBONATE\SODIUM [Concomitant]
     Active Substance: POLYETHYLENE GLYCOL 3350\POTASSIUM CHLORIDE\SODIUM BICARBONATE\SODIUM CHLORIDE
     Dosage: USE AS DIRECTED
     Dates: start: 20211209
  5. ONDANSETRON [Concomitant]
     Active Substance: ONDANSETRON
     Dosage: 5 ML, 2X/DAY
     Dates: start: 20220606, end: 20220608
  6. SODIUM CHLORIDE [Concomitant]
     Active Substance: SODIUM CHLORIDE
     Dosage: USE AS DIRECTED
     Dates: start: 20220616, end: 20220714

REACTIONS (4)
  - Wheezing [Recovered/Resolved]
  - Hypertension [Recovered/Resolved]
  - Rash [Recovered/Resolved]
  - Eye swelling [Recovered/Resolved]

NARRATIVE: CASE EVENT DATE: 20220727
